FAERS Safety Report 7460222-2 (Version None)
Quarter: 2011Q2

REPORT INFORMATION
  Report Type: 
  Country: None (occurrence: None)
  Receive Date: 20110505
  Receipt Date: 20110503
  Transmission Date: 20111010
  Serious: Yes (Other)
  Sender: FDA-Public Use
  Company Number: US-ROCHE-774959

PATIENT
  Sex: Male

DRUGS (1)
  1. ACCUTANE [Suspect]
     Route: 065
     Dates: start: 20070101

REACTIONS (4)
  - HAEMORRHOIDS [None]
  - SKIN FISSURES [None]
  - IRRITABLE BOWEL SYNDROME [None]
  - DIVERTICULUM [None]
